FAERS Safety Report 13527598 (Version 7)
Quarter: 2018Q2

REPORT INFORMATION
  Report Type: Report from Study
  Country: US (occurrence: US)
  Receive Date: 20170509
  Receipt Date: 20180406
  Transmission Date: 20180711
  Serious: Yes (Hospitalization, Other)
  Sender: FDA-Public Use
  Company Number: US-SA-2017SA054597

PATIENT
  Age: 34 Year
  Sex: Female

DRUGS (10)
  1. LEMTRADA [Suspect]
     Active Substance: ALEMTUZUMAB
     Indication: MULTIPLE SCLEROSIS
     Route: 041
     Dates: start: 20170320, end: 20170321
  2. ZOFRAN [Concomitant]
     Active Substance: ONDANSETRON HYDROCHLORIDE
     Route: 065
     Dates: start: 20170315
  3. IRON [Concomitant]
     Active Substance: IRON
     Indication: SUPPLEMENTATION THERAPY
     Route: 065
     Dates: start: 20170315
  4. ZANAFLEX [Concomitant]
     Active Substance: TIZANIDINE HYDROCHLORIDE
     Route: 065
     Dates: start: 20170315
  5. LEMTRADA [Suspect]
     Active Substance: ALEMTUZUMAB
     Indication: MULTIPLE SCLEROSIS
     Route: 041
     Dates: start: 20170315, end: 20170317
  6. PEPCID [Concomitant]
     Active Substance: FAMOTIDINE
     Route: 065
     Dates: start: 20170315
  7. VITAMIN D [Concomitant]
     Active Substance: CHOLECALCIFEROL
     Indication: SUPPLEMENTATION THERAPY
     Route: 065
     Dates: start: 20170315
  8. NORCO [Concomitant]
     Active Substance: ACETAMINOPHEN\HYDROCODONE BITARTRATE
     Dosage: DOSE: 10/325
     Route: 065
     Dates: start: 20170315
  9. VALTREX [Concomitant]
     Active Substance: VALACYCLOVIR HYDROCHLORIDE
     Route: 065
  10. IBUPROFEN. [Concomitant]
     Active Substance: IBUPROFEN
     Route: 065
     Dates: start: 20170315

REACTIONS (41)
  - Condition aggravated [Not Recovered/Not Resolved]
  - Balance disorder [Recovered/Resolved]
  - Gastrooesophageal reflux disease [Recovered/Resolved]
  - Contusion [Not Recovered/Not Resolved]
  - Throat irritation [Unknown]
  - Rhinorrhoea [Not Recovered/Not Resolved]
  - Sinusitis [Unknown]
  - Dyspnoea [Not Recovered/Not Resolved]
  - White blood cell count abnormal [Unknown]
  - Back pain [Not Recovered/Not Resolved]
  - Muscular weakness [Recovered/Resolved]
  - Impaired gastric emptying [Not Recovered/Not Resolved]
  - Metrorrhagia [Recovered/Resolved]
  - Vaginal haemorrhage [Not Recovered/Not Resolved]
  - Musculoskeletal disorder [Not Recovered/Not Resolved]
  - Muscle spasms [Recovered/Resolved]
  - Chest pain [Not Recovered/Not Resolved]
  - Asthenia [Recovering/Resolving]
  - Gait disturbance [Recovering/Resolving]
  - Optic neuritis [Recovering/Resolving]
  - Nasal congestion [Not Recovered/Not Resolved]
  - Cough [Not Recovered/Not Resolved]
  - Muscular weakness [Not Recovered/Not Resolved]
  - Dyspnoea [Recovered/Resolved]
  - Eye disorder [Unknown]
  - Paraesthesia [Not Recovered/Not Resolved]
  - Menorrhagia [Unknown]
  - Pruritus [Not Recovered/Not Resolved]
  - Bronchitis [Unknown]
  - Arthralgia [Not Recovered/Not Resolved]
  - Pain in extremity [Not Recovered/Not Resolved]
  - Coordination abnormal [Recovered/Resolved]
  - Blindness [Recovered/Resolved]
  - Cough [Recovered/Resolved]
  - Laboratory test abnormal [Unknown]
  - Pigmentation disorder [Not Recovered/Not Resolved]
  - Condition aggravated [Recovered/Resolved]
  - Neuralgia [Not Recovered/Not Resolved]
  - Blepharospasm [Recovered/Resolved]
  - Burning sensation [Not Recovered/Not Resolved]
  - Oropharyngeal pain [Not Recovered/Not Resolved]

NARRATIVE: CASE EVENT DATE: 2017
